FAERS Safety Report 5670545-5 (Version None)
Quarter: 2008Q1

REPORT INFORMATION
  Report Type: 
  Country: None (occurrence: None)
  Receive Date: 20080318
  Receipt Date: 20080314
  Transmission Date: 20080703
  Serious: Yes (Life-Threatening, Hospitalization)
  Sender: FDA-Public Use
  Company Number: PHNU2008DE01049

PATIENT
  Age: 74 Year
  Sex: Female
  Weight: 68 kg

DRUGS (8)
  1. RASILEZ [Suspect]
     Indication: HYPERTENSIVE CRISIS
     Dosage: 150 MG/D
     Route: 048
     Dates: start: 20080210, end: 20080216
  2. LASIX [Concomitant]
     Dosage: 1 DF, QD
  3. DELIX PLUS [Concomitant]
     Dosage: 1 DF, QD
     Route: 048
  4. CARMEN [Concomitant]
     Dosage: 10 MG, QD
     Route: 048
  5. SIMVASTATIN [Concomitant]
     Dosage: 1 DF, QD
     Route: 048
  6. BISOPROLOL FUMARATE [Concomitant]
     Dosage: 0.5 DF, BID
     Route: 048
  7. ACETYLSALICYLIC ACID [Concomitant]
     Dosage: 1 DF, QD
     Route: 048
  8. MAGNESIUM VERLA TABLET [Concomitant]
     Dosage: 1 DF, TID
     Route: 048

REACTIONS (12)
  - DEHYDRATION [None]
  - DIARRHOEA [None]
  - ELECTROLYTE IMBALANCE [None]
  - HYPOCALCAEMIA [None]
  - HYPOCHLORAEMIA [None]
  - HYPOKALAEMIA [None]
  - HYPONATRAEMIA [None]
  - HYPOVOLAEMIA [None]
  - RETROGRADE AMNESIA [None]
  - SOMNOLENCE [None]
  - VOMITING [None]
  - WEIGHT DECREASED [None]
